FAERS Safety Report 16633704 (Version 1)
Quarter: 2019Q3

REPORT INFORMATION
  Report Type: Spontaneous
  Country: US (occurrence: US)
  Receive Date: 20190725
  Receipt Date: 20190725
  Transmission Date: 20191004
  Serious: Yes (Hospitalization)
  Sender: FDA-Public Use
  Company Number: None

PATIENT
  Age: 52 Year

DRUGS (22)
  1. DITROPAN [Concomitant]
     Active Substance: OXYBUTYNIN CHLORIDE
  2. FISH OIL [Concomitant]
     Active Substance: FISH OIL
     Dates: start: 20110914
  3. LISINOPRIL. [Concomitant]
     Active Substance: LISINOPRIL
     Dates: start: 20110914
  4. TYLENOL [Concomitant]
     Active Substance: ACETAMINOPHEN
     Dates: start: 20110914
  5. PREVIDENT [Concomitant]
     Active Substance: SODIUM FLUORIDE
     Dates: start: 20110914
  6. REBIF [Concomitant]
     Active Substance: INTERFERON BETA-1A
     Dates: start: 20110914
  7. EXCEDRIN [Concomitant]
     Active Substance: ACETAMINOPHEN\ASPIRIN\CAFFEINE
     Dates: start: 20110914
  8. GABAPENTIN. [Concomitant]
     Active Substance: GABAPENTIN
     Dates: start: 20110914
  9. ADDERALL XR [Concomitant]
     Active Substance: AMPHETAMINE ASPARTATE\AMPHETAMINE SULFATE\DEXTROAMPHETAMINE SACCHARATE\DEXTROAMPHETAMINE SULFATE
     Dates: start: 20160912
  10. BIOTIN [Concomitant]
     Active Substance: BIOTIN
     Dates: start: 20161110
  11. CALCIUM [Concomitant]
     Active Substance: CALCIUM
     Dates: start: 19000101
  12. NORTRIPTYLIN [Concomitant]
     Active Substance: NORTRIPTYLINE
     Dates: start: 20110914
  13. OMEPRAZOLE. [Concomitant]
     Active Substance: OMEPRAZOLE
     Dates: start: 20110914
  14. IBUPROFEN. [Concomitant]
     Active Substance: IBUPROFEN
     Dates: start: 20110914
  15. NUEDEXTA [Concomitant]
     Active Substance: DEXTROMETHORPHAN HYDROBROMIDE\QUINIDINE SULFATE
     Dates: start: 20110914
  16. VESICARE [Concomitant]
     Active Substance: SOLIFENACIN SUCCINATE
     Dates: start: 20110914
  17. DALFAMPRIDINE. [Suspect]
     Active Substance: DALFAMPRIDINE
     Indication: MULTIPLE SCLEROSIS
     Dosage: ?          OTHER FREQUENCY:TWICE DAILY;?
     Route: 048
     Dates: start: 20181020
  18. BACLOFEN. [Concomitant]
     Active Substance: BACLOFEN
     Dates: start: 20110914
  19. CALTRATE [Concomitant]
     Active Substance: CALCIUM CARBONATE
     Dates: start: 20110914
  20. OXYBUTYNIN. [Concomitant]
     Active Substance: OXYBUTYNIN CHLORIDE
  21. APAP/CODEINE [Concomitant]
     Active Substance: ACETAMINOPHEN\CODEINE PHOSPHATE
     Dates: start: 20110914
  22. DULOXETINE. [Concomitant]
     Active Substance: DULOXETINE
     Dates: start: 20151101

REACTIONS (2)
  - Post procedural complication [None]
  - Intrathecal pump insertion [None]
